FAERS Safety Report 15440438 (Version 1)
Quarter: 2018Q3

REPORT INFORMATION
  Report Type: Spontaneous
  Country: US (occurrence: US)
  Receive Date: 20180925
  Receipt Date: 20180925
  Transmission Date: 20181010
  Serious: No
  Sender: FDA-Public Use
  Company Number: None

PATIENT
  Age: 35 Year
  Sex: Female
  Weight: 58.5 kg

DRUGS (6)
  1. SPIROLACTONE [Concomitant]
     Active Substance: SPIRONOLACTONE
  2. CLONOPIN [Concomitant]
     Active Substance: CLONAZEPAM
  3. ENSURE [Concomitant]
     Active Substance: AMINO ACIDS\DEXTROSE\ELECTROLYTES NOS\SOYBEAN OIL\VITAMINS
  4. NIKKI [Concomitant]
     Active Substance: DROSPIRENONE\ETHINYL ESTRADIOL
  5. BIOTIN [Concomitant]
     Active Substance: BIOTIN
  6. AMBIEN [Suspect]
     Active Substance: ZOLPIDEM TARTRATE
     Indication: SLEEP DEFICIT
     Dosage: ?          QUANTITY:1 DF DOSAGE FORM;?
     Route: 048

REACTIONS (1)
  - Drug ineffective [None]
